FAERS Safety Report 12461657 (Version 2)
Quarter: 2016Q2

REPORT INFORMATION
  Report Type: Spontaneous
  Country: US (occurrence: US)
  Receive Date: 20160613
  Receipt Date: 20160617
  Transmission Date: 20160815
  Serious: Yes (Other)
  Sender: FDA-Public Use
  Company Number: US-BAXALTA-2016BLT003940

PATIENT
  Age: 9 Year
  Sex: Male
  Weight: 35 kg

DRUGS (2)
  1. FEIBA [Suspect]
     Active Substance: ANTI-INHIBITOR COAGULANT COMPLEX
     Indication: FACTOR IX DEFICIENCY
     Dosage: 2700 U, UNK
     Route: 042
     Dates: start: 20160429
  2. FEIBA [Suspect]
     Active Substance: ANTI-INHIBITOR COAGULANT COMPLEX
     Dosage: 5 DOSES TO TREAT THE EVENT
     Route: 065
     Dates: start: 201605, end: 2016

REACTIONS (1)
  - Haemorrhage [Recovered/Resolved]

NARRATIVE: CASE EVENT DATE: 201605
